FAERS Safety Report 13666022 (Version 1)
Quarter: 2017Q2

REPORT INFORMATION
  Report Type: Spontaneous
  Country: US (occurrence: US)
  Receive Date: 20170619
  Receipt Date: 20170619
  Transmission Date: 20170830
  Serious: No
  Sender: FDA-Public Use
  Company Number: US-ACTELION-A-US2017-155389

PATIENT
  Age: 45 Year
  Sex: Female

DRUGS (1)
  1. VALCHLOR [Suspect]
     Active Substance: MECHLORETHAMINE
     Indication: MYCOSIS FUNGOIDES
     Dosage: UNK , UNK
     Route: 061
     Dates: start: 20170518

REACTIONS (4)
  - Skin discolouration [Unknown]
  - Application site erythema [Unknown]
  - Application site irritation [Unknown]
  - Application site pain [Unknown]
